FAERS Safety Report 5809580-2 (Version None)
Quarter: 2008Q3

REPORT INFORMATION
  Report Type: 
  Country: None (occurrence: None)
  Receive Date: 20080709
  Receipt Date: 20080626
  Transmission Date: 20090109
  Serious: Yes (Hospitalization)
  Sender: FDA-Public Use
  Company Number: ERP08000017

PATIENT
  Age: 72 Year
  Sex: Male

DRUGS (8)
  1. RISEDRONATE          (RISEDRONATE SODIUM) [Suspect]
     Indication: PROSTATE CANCER
     Dosage: 30 MG, 1/DAY, ORAL; 2 30 MG, ORAL
     Route: 048
     Dates: start: 20061005, end: 20061108
  2. RISEDRONATE          (RISEDRONATE SODIUM) [Suspect]
     Indication: PROSTATE CANCER
     Dosage: 30 MG, 1/DAY, ORAL; 2 30 MG, ORAL
     Route: 048
     Dates: start: 20061116, end: 20061118
  3. DOCETAXEL (DOXETAXEL) [Concomitant]
  4. PREDNISONE TAB [Concomitant]
  5. DICLOFENAC SODIUM [Concomitant]
  6. ANTIHYPERTENSIVES [Concomitant]
  7. GOSERELIN (GOSERELIN) [Concomitant]
  8. SALBUTAMOL W/IPRATROPIUM    (SALBUTAMOL, IPRATROPIUM) [Concomitant]

REACTIONS (2)
  - HAEMOPTYSIS [None]
  - PHARYNGEAL HAEMORRHAGE [None]
